FAERS Safety Report 10771888 (Version 1)
Quarter: 2015Q1

REPORT INFORMATION
  Report Type: Report from Study
  Country: BR (occurrence: BR)
  Receive Date: 20150206
  Receipt Date: 20150206
  Transmission Date: 20150721
  Serious: Yes (Hospitalization)
  Sender: FDA-Public Use
  Company Number: BR-ABBVIE-15K-020-1341031-00

PATIENT
  Age: 63 Year
  Sex: Male

DRUGS (1)
  1. HUMIRA [Suspect]
     Active Substance: ADALIMUMAB
     Indication: RHEUMATOID ARTHRITIS
     Route: 058
     Dates: start: 20141107

REACTIONS (13)
  - Visual impairment [Unknown]
  - Mobility decreased [Unknown]
  - Malaise [Unknown]
  - Nausea [Unknown]
  - Cholecystitis infective [Recovered/Resolved]
  - Amnesia [Unknown]
  - Pancreatic disorder [Recovered/Resolved]
  - Pulmonary oedema [Recovered/Resolved]
  - Abdominal adhesions [Recovered/Resolved]
  - Diarrhoea [Unknown]
  - Decreased appetite [Unknown]
  - Musculoskeletal pain [Unknown]
  - Peripheral nerve infection [Unknown]

NARRATIVE: CASE EVENT DATE: 20141107
